FAERS Safety Report 8829920 (Version 1)
Quarter: 2012Q4

REPORT INFORMATION
  Report Type: 
  Country: US (occurrence: US)
  Receive Date: 20121008
  Receipt Date: 20121008
  Transmission Date: 20130627
  Serious: Yes (Death, Hospitalization, Other)
  Sender: FDA-Public Use
  Company Number: US-ROCHE-1131269

PATIENT
  Sex: Female
  Weight: 50.85 kg

DRUGS (1)
  1. RITUXAN [Suspect]
     Indication: CHRONIC LYMPHOCYTIC LEUKAEMIA
     Route: 065
     Dates: start: 19990917

REACTIONS (6)
  - Death [Fatal]
  - Pneumonia [Unknown]
  - Malignant pleural effusion [Unknown]
  - Dyspnoea [Unknown]
  - Sputum discoloured [Unknown]
  - Decreased appetite [Unknown]
